FAERS Safety Report 24024022 (Version 2)
Quarter: 2024Q3

REPORT INFORMATION
  Report Type: Spontaneous
  Country: FR (occurrence: FR)
  Receive Date: 20240627
  Receipt Date: 20240704
  Transmission Date: 20241017
  Serious: Yes (Other)
  Sender: CELLTRION
  Company Number: FR-CELLTRION INC.-2024FR015460

PATIENT

DRUGS (1)
  1. TRASTUZUMAB [Suspect]
     Active Substance: TRASTUZUMAB
     Indication: Invasive ductal breast carcinoma
     Dosage: 220 MG, EVERY 3 WEEKS
     Route: 042
     Dates: start: 201904, end: 20221028

REACTIONS (1)
  - Gastrointestinal vascular malformation haemorrhagic [Not Recovered/Not Resolved]

NARRATIVE: CASE EVENT DATE: 20210801
